FAERS Safety Report 22813641 (Version 4)
Quarter: 2023Q4

REPORT INFORMATION
  Report Type: Spontaneous
  Country: CH (occurrence: CH)
  Receive Date: 20230811
  Receipt Date: 20231030
  Transmission Date: 20240110
  Serious: Yes (Other)
  Sender: FDA-Public Use
  Company Number: CH-JNJFOC-20230821371

PATIENT
  Sex: Female

DRUGS (1)
  1. STELARA [Suspect]
     Active Substance: USTEKINUMAB
     Indication: Crohn^s disease
     Route: 058
     Dates: start: 2018, end: 202211

REACTIONS (3)
  - Neoplasm malignant [Unknown]
  - Adenocarcinoma [Unknown]
  - Dysplasia [Unknown]

NARRATIVE: CASE EVENT DATE: 20221101
